FAERS Safety Report 6412086-3 (Version None)
Quarter: 2009Q4

REPORT INFORMATION
  Report Type: 
  Country: None (occurrence: None)
  Receive Date: 20091023
  Receipt Date: 20091015
  Transmission Date: 20100525
  Serious: Yes (Other)
  Sender: FDA-Public Use
  Company Number: US-ASTRAZENECA-2009UW13479

PATIENT
  Age: 66 Year
  Sex: Female
  Weight: 93.4 kg

DRUGS (10)
  1. SEROQUEL [Suspect]
     Indication: BIPOLAR DISORDER
     Route: 048
     Dates: start: 20060101, end: 20080901
  2. RISPERDAL [Concomitant]
     Dates: start: 19960101, end: 19980101
  3. ZYPREXA [Concomitant]
  4. ABILIFY [Concomitant]
     Dates: start: 20070101
  5. NAVANE [Concomitant]
  6. STELAZINE [Concomitant]
  7. SERZONE [Concomitant]
  8. PAXIL [Concomitant]
  9. KLONOPIN [Concomitant]
  10. TOPAMAX [Concomitant]

REACTIONS (2)
  - NEUROPATHY PERIPHERAL [None]
  - TYPE 2 DIABETES MELLITUS [None]
